FAERS Safety Report 12548665 (Version 1)
Quarter: 2016Q3

REPORT INFORMATION
  Report Type: Spontaneous
  Country: US (occurrence: None)
  Receive Date: 20160711
  Receipt Date: 20160711
  Transmission Date: 20161109
  Serious: Yes (Other)
  Sender: FDA-Public Use
  Company Number: None

PATIENT
  Age: 49 Year
  Sex: Male
  Weight: 86.18 kg

DRUGS (1)
  1. DOFETILIDE, 500 MCG GREENSTONE [Suspect]
     Active Substance: DOFETILIDE
     Indication: ATRIAL FIBRILLATION
     Route: 048
     Dates: start: 20160620, end: 20160705

REACTIONS (4)
  - Product substitution issue [None]
  - Pruritus [None]
  - Peripheral swelling [None]
  - Heart rate abnormal [None]

NARRATIVE: CASE EVENT DATE: 20160701
